FAERS Safety Report 5060351-7 (Version None)
Quarter: 2006Q3

REPORT INFORMATION
  Report Type: 
  Country: None (occurrence: None)
  Receive Date: 20060720
  Receipt Date: 20060711
  Transmission Date: 20061208
  Serious: Yes (Life-Threatening, Hospitalization)
  Sender: FDA-Public Use
  Company Number: 2006BH011783

PATIENT
  Age: 9 Year
  Sex: Female
  Weight: 17.3 kg

DRUGS (3)
  1. DIANEAL [Suspect]
     Indication: RENAL FAILURE CHRONIC
     Dosage: SEE IMAGE
     Route: 033
     Dates: end: 19990224
  2. DIANEAL [Suspect]
     Indication: RENAL FAILURE CHRONIC
     Dosage: SEE IMAGE
     Route: 033
     Dates: end: 19990224
  3. DIANEAL [Suspect]
     Indication: RENAL FAILURE CHRONIC
     Dosage: SEE IMAGE
     Route: 033
     Dates: end: 19990224

REACTIONS (2)
  - RENAL TRANSPLANT [None]
  - SCLEROSING ENCAPSULATING PERITONITIS [None]
